FAERS Safety Report 5489405-8 (Version None)
Quarter: 2007Q4

REPORT INFORMATION
  Report Type: 
  Country: None (occurrence: None)
  Receive Date: 20071018
  Receipt Date: 20071012
  Transmission Date: 20080405
  Serious: Yes (Other)
  Sender: FDA-Public Use
  Company Number: CA-ASTRAZENECA-2007UW23993

PATIENT
  Age: 72 Year
  Sex: Male

DRUGS (15)
  1. SEROQUEL [Suspect]
     Route: 048
  2. APO-HALOPERIDOL [Suspect]
     Route: 048
  3. LORAZEPAM [Suspect]
     Route: 060
  4. RISPERIDONE [Suspect]
  5. ADVAIR DISKUS 100/50 [Concomitant]
  6. BENZTROPINE [Concomitant]
     Route: 042
  7. BISOPROLOL FUMARATE [Concomitant]
     Route: 048
  8. CRESTOR [Concomitant]
     Route: 048
  9. ASPIRIN 10GR TIMED DISINTEGRATION TAB [Concomitant]
     Route: 048
  10. FINASTERIDE [Concomitant]
     Route: 048
  11. IPRATROPIUM BROMIDE [Concomitant]
  12. LEVOTHYROXINE SODIUM [Concomitant]
     Route: 048
  13. RAMIPRIL [Concomitant]
     Route: 048
  14. SALBUTAMOL [Concomitant]
  15. WARFARIN SODIUM [Concomitant]

REACTIONS (5)
  - DYSTONIA [None]
  - OBSTRUCTIVE AIRWAYS DISORDER [None]
  - RESPIRATORY ARREST [None]
  - SEDATION [None]
  - SLEEP APNOEA SYNDROME [None]
